FAERS Safety Report 6237461-1 (Version None)
Quarter: 2009Q2

REPORT INFORMATION
  Report Type: 
  Country: None (occurrence: None)
  Receive Date: 20090619
  Receipt Date: 20090608
  Transmission Date: 20091009
  Serious: Yes (Hospitalization, Other)
  Sender: FDA-Public Use
  Company Number: PHHY2009IE12752

PATIENT
  Sex: Male

DRUGS (11)
  1. CLOZARIL [Suspect]
     Indication: SCHIZOPHRENIA
     Dosage: UNK
     Dates: start: 19940610
  2. CLOZARIL [Suspect]
     Dosage: 12.5 MG, UNK
     Route: 048
     Dates: start: 20090416
  3. CLOZARIL [Suspect]
     Dosage: UNK
     Dates: start: 20090611
  4. OLANZAPINE [Suspect]
     Dosage: UNK
  5. PREGABALIN [Suspect]
  6. LYRICA [Suspect]
  7. KEMADRIN [Suspect]
  8. QUETIAPINE FUMARATE [Concomitant]
     Dosage: 800 MG, UNK
  9. BENZODIAZEPINES [Concomitant]
  10. ESCITALOPRAM [Concomitant]
  11. PHENERGAN [Concomitant]

REACTIONS (18)
  - BLOOD CREATINE PHOSPHOKINASE INCREASED [None]
  - BLOOD CREATININE INCREASED [None]
  - BLOOD PRESSURE INCREASED [None]
  - C-REACTIVE PROTEIN INCREASED [None]
  - DIALYSIS [None]
  - DYSTONIA [None]
  - GLOMERULAR FILTRATION RATE DECREASED [None]
  - MALAISE [None]
  - MENTAL DISORDER [None]
  - MENTAL IMPAIRMENT [None]
  - MUSCULOSKELETAL STIFFNESS [None]
  - NEUROLEPTIC MALIGNANT SYNDROME [None]
  - PSYCHOTIC DISORDER [None]
  - RENAL FAILURE [None]
  - RENAL IMPAIRMENT [None]
  - RHABDOMYOLYSIS [None]
  - SYNCOPE [None]
  - URINARY RETENTION [None]
